FAERS Safety Report 7091391-4 (Version None)
Quarter: 2010Q4

REPORT INFORMATION
  Report Type: 
  Country: None (occurrence: None)
  Receive Date: 20101109
  Receipt Date: 20101105
  Transmission Date: 20110411
  Serious: Yes (Other)
  Sender: FDA-Public Use
  Company Number: A0891175A

PATIENT
  Age: 58 Year
  Sex: Female

DRUGS (8)
  1. LOVAZA [Suspect]
     Dosage: 2G TWICE PER DAY
     Route: 048
     Dates: start: 20100429, end: 20100801
  2. OXYCODONE HCL AND ACETAMINOPHEN [Concomitant]
  3. NORCO [Concomitant]
  4. PROPOXYPHENE HCL AND ACETAMINOPHEN [Concomitant]
  5. VYTORIN [Concomitant]
  6. BYETTA [Concomitant]
  7. LAMOTRIGINE [Concomitant]
  8. LEXAPRO [Concomitant]

REACTIONS (4)
  - AGEUSIA [None]
  - ANOSMIA [None]
  - DECREASED APPETITE [None]
  - WEIGHT DECREASED [None]
